FAERS Safety Report 5316226-9 (Version None)
Quarter: 2007Q2

REPORT INFORMATION
  Report Type: 
  Country: None (occurrence: None)
  Receive Date: 20070503
  Receipt Date: 20070427
  Transmission Date: 20071010
  Serious: Yes (Other)
  Sender: FDA-Public Use
  Company Number: BE-BOEHRINGER INGELHEIM PHARMACEUTICALS, INC.-2007-DE-02467GD

PATIENT

DRUGS (7)
  1. NEVIRAPINE [Suspect]
     Indication: HIV INFECTION
     Route: 015
  2. NEVIRAPINE [Suspect]
  3. ZIDOVUDINE [Suspect]
     Indication: HIV INFECTION
     Route: 015
  4. ZIDOVUDINE [Suspect]
  5. LAMIVUDINE [Suspect]
     Indication: HIV INFECTION
     Route: 015
  6. LAMIVUDINE [Suspect]
  7. NELFINAVIR [Suspect]
     Route: 015

REACTIONS (3)
  - DRUG EFFECT DECREASED [None]
  - HUMAN IMMUNODEFICIENCY VIRUS TRANSMISSION [None]
  - PREMATURE BABY [None]
